FAERS Safety Report 14324354 (Version 1)
Quarter: 2017Q4

REPORT INFORMATION
  Report Type: Spontaneous
  Country: US (occurrence: US)
  Receive Date: 20171222
  Receipt Date: 20171222
  Transmission Date: 20180321
  Serious: No
  Sender: FDA-Public Use
  Company Number: None

PATIENT
  Sex: Female

DRUGS (1)
  1. NORTHERA [Suspect]
     Active Substance: DROXIDOPA
     Indication: AUTONOMIC NEUROPATHY
     Dosage: TITRATION SCHEDULE VARIES DAILY PO
     Route: 048
     Dates: start: 20171117, end: 20171221

REACTIONS (4)
  - Headache [None]
  - Feeling abnormal [None]
  - Nausea [None]
  - Therapy cessation [None]
